FAERS Safety Report 11788211 (Version 1)
Quarter: 2015Q4

REPORT INFORMATION
  Report Type: Spontaneous
  Country: US (occurrence: US)
  Receive Date: 20151201
  Receipt Date: 20151201
  Transmission Date: 20160305
  Serious: No
  Sender: FDA-Public Use
  Company Number: US-ASTRAZENECA-2015SF13295

PATIENT
  Age: 84 Year
  Sex: Male

DRUGS (1)
  1. PULMICORT FLEXHALER [Suspect]
     Active Substance: BUDESONIDE
     Dosage: 180MCG, 1 PUFF ONCE A DAY
     Route: 055

REACTIONS (3)
  - Visual acuity reduced [Unknown]
  - Intentional product use issue [Unknown]
  - Mental impairment [Unknown]
